FAERS Safety Report 7600100-9 (Version None)
Quarter: 2011Q3

REPORT INFORMATION
  Report Type: 
  Country: None (occurrence: None)
  Receive Date: 20110711
  Receipt Date: 20110628
  Transmission Date: 20111222
  Serious: Yes (Hospitalization)
  Sender: FDA-Public Use
  Company Number: CA-JNJFOC-20110700732

PATIENT
  Sex: Male
  Weight: 68.2 kg

DRUGS (3)
  1. ATENOLOL [Concomitant]
  2. AZATHIOPRINE [Concomitant]
  3. REMICADE [Suspect]
     Indication: CROHN'S DISEASE
     Route: 042
     Dates: start: 20071218

REACTIONS (1)
  - VASCULAR GRAFT [None]
